FAERS Safety Report 4551045-2 (Version None)
Quarter: 2005Q1

REPORT INFORMATION
  Report Type: 
  Country: None (occurrence: None)
  Receive Date: 20050113
  Receipt Date: 20040824
  Transmission Date: 20050727
  Serious: No
  Sender: FDA-Public Use
  Company Number: US-BRISTOL-MYERS SQUIBB COMPANY-12681813

PATIENT
  Sex: Male
  Weight: 79 kg

DRUGS (1)
  1. TRAZODONE HCL [Suspect]
     Indication: INSOMNIA
     Dosage: STARTED AT 50MG, A FEW NIGHTS LATER TOOK 100MG AND THE THIRD TIME TOOK 100MG
     Route: 048
     Dates: start: 20040801, end: 20040801

REACTIONS (1)
  - ERECTION INCREASED [None]
